FAERS Safety Report 4804643-2 (Version None)
Quarter: 2005Q4

REPORT INFORMATION
  Report Type: 
  Country: None (occurrence: None)
  Receive Date: 20051014
  Receipt Date: 20051006
  Transmission Date: 20060501
  Serious: Yes (Other)
  Sender: FDA-Public Use
  Company Number: 163-20785-05100089

PATIENT
  Age: 53 Year
  Sex: Female
  Weight: 62.5964 kg

DRUGS (8)
  1. THALOMID [Suspect]
     Indication: MULTIPLE MYELOMA
     Dosage: ORAL
     Route: 048
  2. LEVAQUIN [Suspect]
     Indication: RESPIRATORY TRACT INFECTION
     Dosage: 500 MG, DAILY, ORAL
     Route: 048
     Dates: start: 20041001, end: 20041001
  3. AMOXICILLIN [Concomitant]
  4. CLAVULANIC ACID (CLAVULANIC ACID) [Concomitant]
  5. FLUTICASONE [Concomitant]
  6. ALBUTEROL [Concomitant]
  7. DEXAMETHASONE [Concomitant]
  8. COUMADIN [Concomitant]

REACTIONS (5)
  - BRONCHITIS [None]
  - FIBROMYALGIA [None]
  - NEUROPATHY PERIPHERAL [None]
  - RESPIRATORY TRACT INFECTION [None]
  - TENDONITIS [None]
